FAERS Safety Report 15020607 (Version 1)
Quarter: 2018Q2

REPORT INFORMATION
  Report Type: Spontaneous
  Country: US (occurrence: US)
  Receive Date: 20180618
  Receipt Date: 20180618
  Transmission Date: 20180711
  Serious: No
  Sender: FDA-Public Use
  Company Number: US-MALLINCKRODT-T201703675

PATIENT

DRUGS (1)
  1. HYDROCODONE/ACETAMINOPHEN [Suspect]
     Active Substance: ACETAMINOPHEN\HYDROCODONE
     Indication: PAIN MANAGEMENT
     Dosage: 10MG/325MG, 2 AT A TIME
     Route: 065

REACTIONS (13)
  - Headache [Unknown]
  - Sneezing [Unknown]
  - Drug ineffective [Unknown]
  - Peripheral swelling [Unknown]
  - Pruritus [Unknown]
  - Constipation [Unknown]
  - Insomnia [Unknown]
  - Palpitations [Unknown]
  - Feeding disorder [Unknown]
  - Nausea [Unknown]
  - Diarrhoea [Unknown]
  - Heart rate abnormal [Unknown]
  - Weight decreased [Unknown]
